FAERS Safety Report 12153065 (Version 1)
Quarter: 2016Q1

REPORT INFORMATION
  Report Type: Spontaneous
  Country: US (occurrence: US)
  Receive Date: 20160305
  Receipt Date: 20160305
  Transmission Date: 20160526
  Serious: No
  Sender: FDA-Public Use
  Company Number: US-JNJFOC-20160108216

PATIENT
  Age: 12 Month
  Sex: Female
  Weight: 9.07 kg

DRUGS (1)
  1. CHILDRENS SUDAFED PE NASAL DECONGESTANT [Suspect]
     Active Substance: PHENYLEPHRINE HYDROCHLORIDE
     Indication: ACCIDENTAL EXPOSURE TO PRODUCT
     Route: 048
     Dates: start: 20160111

REACTIONS (1)
  - Accidental exposure to product [Unknown]
